FAERS Safety Report 4699158-9 (Version None)
Quarter: 2005Q2

REPORT INFORMATION
  Report Type: 
  Country: None (occurrence: None)
  Receive Date: 20050622
  Receipt Date: 20050622
  Transmission Date: 20051028
  Serious: Yes (Other)
  Sender: FDA-Public Use
  Company Number: None

PATIENT
  Age: 9 Year
  Sex: Male
  Weight: 22.4531 kg

DRUGS (2)
  1. BILTRICIDE [Suspect]
     Indication: SCHISTOSOMIASIS
     Dosage: ORAL
     Route: 048
     Dates: start: 20040714
  2. BILTRICIDE [Suspect]
     Indication: SCHISTOSOMIASIS
     Dosage: ORAL
     Route: 048
     Dates: start: 20041216

REACTIONS (1)
  - RED BLOOD CELL SCHISTOCYTES PRESENT [None]
